FAERS Safety Report 11842774 (Version 1)
Quarter: 2015Q4

REPORT INFORMATION
  Report Type: Spontaneous
  Country: AU (occurrence: AU)
  Receive Date: 20151216
  Receipt Date: 20151216
  Transmission Date: 20160305
  Serious: Yes (Other)
  Sender: FDA-Public Use
  Company Number: PHHY2015AU161840

PATIENT
  Age: 18 Year
  Sex: Male
  Weight: 89 kg

DRUGS (2)
  1. FLUOXETINE [Suspect]
     Active Substance: FLUOXETINE HYDROCHLORIDE
     Indication: DEPRESSION
     Dosage: 20 MG, QD, MORNING
     Route: 065
  2. QUETIAPINE [Suspect]
     Active Substance: QUETIAPINE
     Indication: HALLUCINATION
     Dosage: 150 MG, QD,  AT NIGHT
     Route: 065

REACTIONS (3)
  - Hepatic steatosis [Unknown]
  - Weight increased [Recovering/Resolving]
  - Hyperlipidaemia [Not Recovered/Not Resolved]
